FAERS Safety Report 9587347 (Version 1)
Quarter: 2013Q4

REPORT INFORMATION
  Report Type: Spontaneous
  Country: US (occurrence: US)
  Receive Date: 20131003
  Receipt Date: 20131003
  Transmission Date: 20140711
  Serious: No
  Sender: FDA-Public Use
  Company Number: US-PFIZER INC-2013280773

PATIENT
  Age: 76 Year
  Sex: Female

DRUGS (2)
  1. XALKORI [Suspect]
     Indication: BRONCHIAL NEOPLASM
     Dosage: 250 MG, 2X/DAY
     Route: 048
     Dates: start: 20120301
  2. XALKORI [Suspect]
     Indication: LUNG NEOPLASM MALIGNANT

REACTIONS (1)
  - Lymphadenopathy [Unknown]
